FAERS Safety Report 11801447 (Version 1)
Quarter: 2015Q4

REPORT INFORMATION
  Report Type: Other
  Country: HR (occurrence: HR)
  Receive Date: 20151204
  Receipt Date: 20151204
  Transmission Date: 20160305
  Serious: Yes (Other)
  Sender: FDA-Public Use
  Company Number: HR-SYMPLMED PHARMACEUTICALS-2015SYMPLMED000091

PATIENT

DRUGS (2)
  1. AMLODIPINE BESYLATE\PERINDOPRIL ARGININE [Suspect]
     Active Substance: AMLODIPINE BESYLATE\PERINDOPRIL ARGININE
     Indication: HYPERTENSION
     Dosage: 1 DF DAILY AND IF NECESSARY ONE AND A HALF PER DAY
     Route: 048
     Dates: start: 201502
  2. CONTROLOC [Concomitant]
     Active Substance: PANTOPRAZOLE SODIUM
     Indication: PRODUCT USED FOR UNKNOWN INDICATION
     Dosage: 40 MG, QD
     Dates: end: 201509

REACTIONS (19)
  - Dyspepsia [Unknown]
  - Arthralgia [Unknown]
  - Dysgeusia [Unknown]
  - Weight increased [Unknown]
  - Wheezing [Unknown]
  - Asthenia [Unknown]
  - Bronchospasm [Unknown]
  - Pharyngeal inflammation [Unknown]
  - Abdominal distension [Unknown]
  - Muscle tightness [Unknown]
  - Rhinitis [Unknown]
  - Gastrointestinal motility disorder [Unknown]
  - Myalgia [Unknown]
  - Depression [Unknown]
  - Insomnia [Unknown]
  - Anxiety [Unknown]
  - Cough [Unknown]
  - Constipation [Unknown]
  - Micturition disorder [Unknown]

NARRATIVE: CASE EVENT DATE: 2015
